FAERS Safety Report 8621548-X (Version None)
Quarter: 2012Q3

REPORT INFORMATION
  Report Type: 
  Country: None (occurrence: None)
  Receive Date: 20120824
  Receipt Date: 20120821
  Transmission Date: 20120928
  Serious: Yes (Death, Other)
  Sender: FDA-Public Use
  Company Number: CHPA2012US018168

PATIENT
  Age: 76 Year
  Sex: Male

DRUGS (2)
  1. VOLTAREN [Suspect]
     Indication: ARTHRITIS
     Dosage: UNK, COUPLE TIMES A DAY AS NEEDED
     Route: 061
     Dates: start: 20110101
  2. TRIAMCINOLONE ACETONIDE [Concomitant]
     Indication: NEUROPATHY PERIPHERAL

REACTIONS (2)
  - GOUT [None]
  - RENAL CANCER [None]
